FAERS Safety Report 14183104 (Version 3)
Quarter: 2018Q1

REPORT INFORMATION
  Report Type: Report from Study
  Country: CA (occurrence: CA)
  Receive Date: 20171113
  Receipt Date: 20180307
  Transmission Date: 20180508
  Serious: Yes (Other)
  Sender: FDA-Public Use
  Company Number: CA-JNJFOC-20171110256

PATIENT
  Age: 43 Year
  Sex: Male
  Weight: 85 kg

DRUGS (2)
  1. STELARA [Suspect]
     Active Substance: USTEKINUMAB
     Indication: PSORIASIS
     Route: 058
     Dates: start: 20180226
  2. STELARA [Suspect]
     Active Substance: USTEKINUMAB
     Indication: PSORIASIS
     Dosage: STRENGTH = 90 MG
     Route: 058
     Dates: start: 20111125

REACTIONS (9)
  - Decreased appetite [Unknown]
  - Fatigue [Not Recovered/Not Resolved]
  - Acne [Unknown]
  - Lung neoplasm malignant [Unknown]
  - Nausea [Unknown]
  - Myalgia [Unknown]
  - Colorectal cancer [Unknown]
  - Pulmonary mass [Unknown]
  - Headache [Unknown]

NARRATIVE: CASE EVENT DATE: 2017
